FAERS Safety Report 9188859 (Version 4)
Quarter: 2014Q2

REPORT INFORMATION
  Report Type: Spontaneous
  Country: US (occurrence: US)
  Receive Date: 20130326
  Receipt Date: 20140522
  Transmission Date: 20141212
  Serious: Yes (Disabling)
  Sender: FDA-Public Use
  Company Number: US-009507513-1303USA009051

PATIENT
  Sex: Male

DRUGS (1)
  1. PROPECIA [Suspect]
     Indication: ANDROGENETIC ALOPECIA
     Dosage: 1 MG, UNK
     Route: 048
     Dates: start: 20031202, end: 2005

REACTIONS (17)
  - Depression [Not Recovered/Not Resolved]
  - Anxiety [Unknown]
  - Drug prescribing error [Unknown]
  - Mood swings [Unknown]
  - Cognitive disorder [Not Recovered/Not Resolved]
  - Sexual dysfunction [Not Recovered/Not Resolved]
  - Infertility male [Not Recovered/Not Resolved]
  - Erectile dysfunction [Unknown]
  - Loss of libido [Unknown]
  - Road traffic accident [Unknown]
  - Nervousness [Unknown]
  - Nocturia [Unknown]
  - Hair transplant [Unknown]
  - Urinary retention [Unknown]
  - Epididymal cyst [Unknown]
  - Hydrocele [Unknown]
  - Testis discomfort [Unknown]
